FAERS Safety Report 18860671 (Version 1)
Quarter: 2021Q1

REPORT INFORMATION
  Report Type: Report from Study
  Country: US (occurrence: US)
  Receive Date: 20210208
  Receipt Date: 20210208
  Transmission Date: 20210420
  Serious: Yes (Other)
  Sender: FDA-Public Use
  Company Number: US-EMD SERONO-9216439

PATIENT
  Sex: Male

DRUGS (2)
  1. REBIF [Suspect]
     Active Substance: INTERFERON BETA-1A
     Route: 058
     Dates: start: 202011, end: 202012
  2. REBIF [Suspect]
     Active Substance: INTERFERON BETA-1A
     Indication: PRODUCT USED FOR UNKNOWN INDICATION
     Route: 058
     Dates: start: 20200415, end: 202011

REACTIONS (8)
  - General physical health deterioration [Recovering/Resolving]
  - Anal incontinence [Recovering/Resolving]
  - Product dose omission issue [Unknown]
  - Hallucination [Recovering/Resolving]
  - Depression [Recovering/Resolving]
  - Drug ineffective [Unknown]
  - Mobility decreased [Recovering/Resolving]
  - Urinary incontinence [Recovering/Resolving]
